FAERS Safety Report 18782217 (Version 1)
Quarter: 2021Q1

REPORT INFORMATION
  Report Type: Spontaneous
  Country: AT (occurrence: AT)
  Receive Date: 20210125
  Receipt Date: 20210125
  Transmission Date: 20210419
  Serious: Yes (Other)
  Sender: FDA-Public Use
  Company Number: AT-MYLANLABS-2021M1003435

PATIENT
  Age: 44 Year
  Sex: Male

DRUGS (19)
  1. VINCRISTINE SULFATE. [Suspect]
     Active Substance: VINCRISTINE SULFATE
     Indication: DIFFUSE LARGE B-CELL LYMPHOMA
     Dosage: UNK UNK, CYCLE (8 CYCLES ? R?CHOP)
     Route: 065
     Dates: end: 200704
  2. IFOSFAMIDE. [Suspect]
     Active Substance: IFOSFAMIDE
     Indication: DIFFUSE LARGE B-CELL LYMPHOMA
     Dosage: UNK, CYCLE (3 CYCLES R?ICE)
     Route: 065
     Dates: start: 20100902
  3. CYCLOPHOSPHAMIDE. [Suspect]
     Active Substance: CYCLOPHOSPHAMIDE
     Indication: DIFFUSE LARGE B-CELL LYMPHOMA
     Dosage: UNK UNK, CYCLE (8 CYCLES ? R?CHOP)
     Route: 065
     Dates: end: 200704
  4. MABTHERA [Suspect]
     Active Substance: RITUXIMAB
     Dosage: UNK UNK, CYCLE (3 CYCLES ? R?DHAP)
     Route: 065
     Dates: start: 201209, end: 20121201
  5. CYTARABINE. [Suspect]
     Active Substance: CYTARABINE
     Indication: DIFFUSE LARGE B-CELL LYMPHOMA
     Dosage: UNK, CYCLE (3 CYCLES ? R?DHAP)
     Route: 065
     Dates: start: 201209, end: 201212
  6. CISPLATIN. [Suspect]
     Active Substance: CISPLATIN
     Indication: DIFFUSE LARGE B-CELL LYMPHOMA
     Dosage: UNK UNK, CYCLE (8 CYCLES ? R?CHOP)
     Route: 065
     Dates: end: 200704
  7. POLATUZUMAB VEDOTIN. [Suspect]
     Active Substance: POLATUZUMAB VEDOTIN
     Indication: DIFFUSE LARGE B-CELL LYMPHOMA
     Dosage: UNK
     Route: 065
     Dates: start: 20200525
  8. MABTHERA [Suspect]
     Active Substance: RITUXIMAB
     Indication: DIFFUSE LARGE B-CELL LYMPHOMA
     Dosage: UNK (POLATUZUMAB?RITUXIMAB?RIBOMUSTIN)
     Route: 065
     Dates: start: 20200525
  9. RIBOMUSTIN [Suspect]
     Active Substance: BENDAMUSTINE HYDROCHLORIDE
     Indication: DIFFUSE LARGE B-CELL LYMPHOMA
     Dosage: UNK (POLATUZUMAB?RITUXIMAB?RIBOMUSTIN)
     Route: 065
     Dates: start: 20200525
  10. DEXAMETHASONE. [Suspect]
     Active Substance: DEXAMETHASONE
     Indication: DIFFUSE LARGE B-CELL LYMPHOMA
     Dosage: UNK UNK, CYCLE (3 CYCLES ? R?DHAP)
     Route: 065
     Dates: start: 201209, end: 201212
  11. MABTHERA [Suspect]
     Active Substance: RITUXIMAB
     Dosage: UNK UNK, CYCLE (1 CYCLE MAINTENANCE R?BENDAMUSTINE)
     Route: 065
     Dates: start: 201405
  12. MABTHERA [Suspect]
     Active Substance: RITUXIMAB
     Dosage: UNK UNK, CYCLE (8 CYCLES ? R?CHOP)
     Route: 065
     Dates: end: 20070401
  13. PREDNISONE. [Suspect]
     Active Substance: PREDNISONE
     Indication: DIFFUSE LARGE B-CELL LYMPHOMA
     Dosage: UNK UNK, CYCLE (8 CYCLES ? R?CHOP)
     Route: 065
     Dates: end: 20070401
  14. CARBOPLATIN. [Suspect]
     Active Substance: CARBOPLATIN
     Indication: DIFFUSE LARGE B-CELL LYMPHOMA
     Dosage: UNK UNK, CYCLE (3 CYCLES R?ICE)
     Route: 065
     Dates: end: 20100902
  15. DOXORUBICIN [Suspect]
     Active Substance: DOXORUBICIN
     Indication: DIFFUSE LARGE B-CELL LYMPHOMA
     Dosage: UNK, CYCLE (8 CYCLES ? R?CHOP)
     Route: 065
     Dates: end: 200704
  16. PIXUVRI [Suspect]
     Active Substance: PIXANTRONE DIMALEATE
     Indication: DIFFUSE LARGE B-CELL LYMPHOMA
     Dosage: UNK UNK, CYCLE (4 CYCLES)
     Route: 065
     Dates: end: 201312
  17. BENDAMUSTINE HYDROCHLORIDE. [Suspect]
     Active Substance: BENDAMUSTINE HYDROCHLORIDE
     Indication: DIFFUSE LARGE B-CELL LYMPHOMA
     Dosage: UNK, CYCLE (1 CYCLE MAINTENANCE R?BENDAMUSTINE)
     Route: 065
     Dates: start: 201405
  18. ETOPOSIDE. [Suspect]
     Active Substance: ETOPOSIDE
     Indication: DIFFUSE LARGE B-CELL LYMPHOMA
     Dosage: UNK (R?ICE)
     Route: 065
     Dates: end: 20100902
  19. MABTHERA [Suspect]
     Active Substance: RITUXIMAB
     Dosage: UNK (MAINTENANCE)
     Route: 065
     Dates: start: 201301

REACTIONS (8)
  - Disease recurrence [Recovered/Resolved]
  - Cardiomyopathy [Unknown]
  - Intentional product use issue [Unknown]
  - C-reactive protein increased [Unknown]
  - Hepatitis B reactivation [Unknown]
  - Neutrophilia [Unknown]
  - Off label use [Unknown]
  - Leukocytosis [Unknown]

NARRATIVE: CASE EVENT DATE: 202010
